FAERS Safety Report 25686936 (Version 2)
Quarter: 2025Q4

REPORT INFORMATION
  Report Type: Spontaneous
  Country: EU (occurrence: EU)
  Receive Date: 20250816
  Receipt Date: 20251228
  Transmission Date: 20260118
  Serious: Yes (Hospitalization, Other)
  Sender: AUROBINDO
  Company Number: EU-GSK-FR2025GSK077261

PATIENT
  Age: 54 Year
  Sex: Female

DRUGS (3)
  1. CARBOPLATIN [Suspect]
     Active Substance: CARBOPLATIN
     Indication: Endometrial cancer recurrent
     Dosage: UNK 1 TOTAL
  2. PACLITAXEL [Suspect]
     Active Substance: PACLITAXEL
     Indication: Endometrial cancer recurrent
     Dosage: UNK 1TOTAL
  3. DOSTARLIMAB [Suspect]
     Active Substance: DOSTARLIMAB
     Indication: Endometrial cancer recurrent
     Dosage: 500 MG, Q3W

REACTIONS (4)
  - Toxic skin eruption [Not Recovered/Not Resolved]
  - Malignant neoplasm progression [Unknown]
  - Thrombocytopenia [Recovered/Resolved]
  - Rash [Recovered/Resolved]

NARRATIVE: CASE EVENT DATE: 20250524
